FAERS Safety Report 7047393-7 (Version None)
Quarter: 2010Q4

REPORT INFORMATION
  Report Type: 
  Country: None (occurrence: None)
  Receive Date: 20101015
  Receipt Date: 20101011
  Transmission Date: 20110411
  Serious: Yes (Hospitalization, Other)
  Sender: FDA-Public Use
  Company Number: US-TEVA-251251USA

PATIENT
  Sex: Female

DRUGS (8)
  1. COPAXONE [Suspect]
     Indication: MULTIPLE SCLEROSIS
     Route: 058
     Dates: start: 20020529
  2. PREDNISONE [Concomitant]
  3. CETIRIZINE HYDROCHLORIDE [Concomitant]
  4. RANITIDINE HYDROCHLORIDE [Concomitant]
  5. LORAZEPAM [Concomitant]
  6. CALCIUM CHANNEL BLOCKER [Concomitant]
  7. BACLOFEN [Concomitant]
  8. ESOMEPRAZOLE MAGNESIUM [Concomitant]

REACTIONS (3)
  - DYSPNOEA [None]
  - SENSATION OF FOREIGN BODY [None]
  - SWOLLEN TONGUE [None]
